FAERS Safety Report 5734722-7 (Version None)
Quarter: 2008Q2

REPORT INFORMATION
  Report Type: 
  Country: None (occurrence: None)
  Receive Date: 20080512
  Receipt Date: 20080502
  Transmission Date: 20081010
  Serious: Yes (Hospitalization)
  Sender: FDA-Public Use
  Company Number: AU-AMGEN-US274573

PATIENT
  Sex: Male

DRUGS (10)
  1. PANITUMUMAB [Suspect]
     Indication: COLORECTAL CANCER
     Route: 042
     Dates: start: 20070220
  2. IRINOTECAN HCL [Suspect]
     Route: 042
     Dates: start: 20070220
  3. FLUOROURACIL [Suspect]
     Route: 042
     Dates: start: 20070220
  4. LEUCOVORIN CALCIUM [Suspect]
     Dates: start: 20070220
  5. NORFLOXACIN [Concomitant]
  6. NAPROXEN [Concomitant]
  7. MAGMIN [Concomitant]
  8. RANITIDINE [Concomitant]
  9. PANADEINE [Concomitant]
  10. TEMAZEPAM [Concomitant]

REACTIONS (2)
  - CANDIDA SEPSIS [None]
  - URETERIC OBSTRUCTION [None]
